FAERS Safety Report 6528707-0 (Version None)
Quarter: 2010Q1

REPORT INFORMATION
  Report Type: 
  Country: None (occurrence: None)
  Receive Date: 20100106
  Receipt Date: 20100104
  Transmission Date: 20100710
  Serious: Yes (Other)
  Sender: FDA-Public Use
  Company Number: BR-ABBOTT-10P-020-0617559-00

PATIENT
  Sex: Male

DRUGS (7)
  1. DEPAKENE [Suspect]
     Indication: CONVULSION
     Route: 048
     Dates: start: 20090401, end: 20090701
  2. DEPAKENE [Suspect]
     Route: 048
     Dates: start: 20091218
  3. DEPAKENE [Suspect]
  4. VALPAKINE [Suspect]
     Indication: CONVULSION
     Route: 048
     Dates: start: 20090701, end: 20091218
  5. GARDENAL [Suspect]
     Indication: CONVULSION
     Route: 048
     Dates: start: 20090201, end: 20091101
  6. GARDENAL [Suspect]
     Route: 048
     Dates: start: 20091101
  7. LAMOTRIGINE [Concomitant]
     Indication: DRUG USE FOR UNKNOWN INDICATION
     Dates: start: 20091101

REACTIONS (4)
  - CONVULSION [None]
  - DRUG INEFFECTIVE [None]
  - MUSCLE SPASMS [None]
  - NERVE INJURY [None]
